FAERS Safety Report 16017688 (Version 1)
Quarter: 2019Q2

REPORT INFORMATION
  Report Type: Spontaneous
  Country: US (occurrence: US)
  Receive Date: 20190228
  Receipt Date: 20190228
  Transmission Date: 20190711
  Serious: Yes (Other)
  Sender: FDA-Public Use
  Company Number: None

PATIENT
  Age: 71 Year
  Sex: Male

DRUGS (8)
  1. FELODIPINE. [Concomitant]
     Active Substance: FELODIPINE
  2. ATORVASTATIN 10MG TABLET [Suspect]
     Active Substance: ATORVASTATIN
     Indication: BLOOD CHOLESTEROL INCREASED
     Dosage: ?          QUANTITY:1 TABLET(S);?
     Route: 048
     Dates: start: 20190225, end: 20190227
  3. RANIDATINE [Concomitant]
  4. LOSARTIN [Concomitant]
     Active Substance: LOSARTAN
  5. SOLATOL [Concomitant]
     Active Substance: SOTALOL
  6. LEVOTHYROXINE. [Concomitant]
     Active Substance: LEVOTHYROXINE
  7. COQ10 [Concomitant]
     Active Substance: UBIDECARENONE
  8. PRADAXA [Concomitant]
     Active Substance: DABIGATRAN ETEXILATE MESYLATE

REACTIONS (6)
  - Product substitution issue [None]
  - Drug hypersensitivity [None]
  - Recalled product [None]
  - Oral discomfort [None]
  - Palatal swelling [None]
  - Facial pain [None]

NARRATIVE: CASE EVENT DATE: 20190226
